APPROVED DRUG PRODUCT: AZELASTINE HYDROCHLORIDE
Active Ingredient: AZELASTINE HYDROCHLORIDE
Strength: 0.05%
Dosage Form/Route: SOLUTION/DROPS;OPHTHALMIC
Application: A203660 | Product #001
Applicant: EPIC PHARMA LLC
Approved: Nov 8, 2016 | RLD: No | RS: No | Type: DISCN